FAERS Safety Report 4655201-4 (Version None)
Quarter: 2005Q2

REPORT INFORMATION
  Report Type: 
  Country: None (occurrence: None)
  Receive Date: 20050506
  Receipt Date: 20040709
  Transmission Date: 20051028
  Serious: Yes (Other)
  Sender: FDA-Public Use
  Company Number: GB-GLAXOSMITHKLINE-B0338535A

PATIENT
  Age: 16 Year
  Sex: Male

DRUGS (5)
  1. PAROXETINE HCL [Suspect]
     Dosage: 20MG PER DAY
     Route: 065
     Dates: start: 20000801, end: 20010101
  2. MELLARIL [Suspect]
     Route: 065
     Dates: start: 20001206
  3. DIAZEPAM [Suspect]
     Dates: start: 20001206
  4. CANNABIS [Concomitant]
  5. SERTRALINE HCL [Concomitant]
     Indication: DEPRESSION
     Route: 065
     Dates: start: 20020508

REACTIONS (18)
  - ABNORMAL BEHAVIOUR [None]
  - AGGRESSION [None]
  - ANGER [None]
  - ANOREXIA [None]
  - ANXIETY [None]
  - COGNITIVE DISORDER [None]
  - CONDITION AGGRAVATED [None]
  - DEPRESSION [None]
  - DRUG ABUSER [None]
  - ILL-DEFINED DISORDER [None]
  - MEMORY IMPAIRMENT [None]
  - MOOD ALTERED [None]
  - NAUSEA [None]
  - OVERDOSE [None]
  - SUICIDE ATTEMPT [None]
  - TREATMENT NONCOMPLIANCE [None]
  - VERBAL ABUSE [None]
  - WEIGHT DECREASED [None]
